FAERS Safety Report 16461045 (Version 1)
Quarter: 2019Q2

REPORT INFORMATION
  Report Type: Spontaneous
  Country: US (occurrence: US)
  Receive Date: 20190621
  Receipt Date: 20190621
  Transmission Date: 20190711
  Serious: No
  Sender: FDA-Public Use
  Company Number: US-GLENMARK PHARMACEUTICALS-2019GMK041734

PATIENT

DRUGS (7)
  1. ESTRADIOL VAGINAL INSERTS USP [Suspect]
     Active Substance: ESTRADIOL
     Indication: VAGINAL PROLAPSE
  2. PREVACID [Concomitant]
     Active Substance: LANSOPRAZOLE
     Indication: GASTROOESOPHAGEAL REFLUX DISEASE
     Dosage: UNK
     Route: 065
  3. ESTRADIOL VAGINAL INSERTS USP [Suspect]
     Active Substance: ESTRADIOL
     Indication: POLLAKIURIA
     Dosage: UNK, TWICE A WEEK
     Route: 067
     Dates: start: 20190605
  4. ESTRADIOL VAGINAL INSERTS USP [Suspect]
     Active Substance: ESTRADIOL
     Indication: URINARY INCONTINENCE
  5. SYMBICORT [Concomitant]
     Active Substance: BUDESONIDE\FORMOTEROL FUMARATE DIHYDRATE
     Indication: ASTHMA
     Dosage: UNK
     Route: 065
  6. FENOFIBRATE. [Concomitant]
     Active Substance: FENOFIBRATE
     Indication: CARDIAC DISORDER
     Dosage: UNK
     Route: 065
  7. DILTIAZEM. [Concomitant]
     Active Substance: DILTIAZEM
     Indication: CARDIAC DISORDER
     Dosage: UNK
     Route: 065

REACTIONS (4)
  - Drug ineffective [Unknown]
  - Product substitution issue [Unknown]
  - Pollakiuria [Unknown]
  - Urinary incontinence [Unknown]

NARRATIVE: CASE EVENT DATE: 20190605
